FAERS Safety Report 10251808 (Version 1)
Quarter: 2014Q2

REPORT INFORMATION
  Report Type: Spontaneous
  Country: PY (occurrence: PY)
  Receive Date: 20140623
  Receipt Date: 20140623
  Transmission Date: 20141212
  Serious: Yes (Other)
  Sender: FDA-Public Use
  Company Number: PY-AMGEN-PRYSP2014046719

PATIENT
  Age: 60 Year
  Sex: Female

DRUGS (1)
  1. ENBREL [Suspect]
     Indication: RHEUMATOID ARTHRITIS
     Dosage: 50 MG, WEEKLY
     Route: 065
     Dates: start: 201309, end: 2014

REACTIONS (1)
  - Breast disorder [Unknown]
